FAERS Safety Report 21912506 (Version 3)
Quarter: 2023Q1

REPORT INFORMATION
  Report Type: Spontaneous
  Country: BG (occurrence: BG)
  Receive Date: 20230125
  Receipt Date: 20230221
  Transmission Date: 20230417
  Serious: Yes (Hospitalization)
  Sender: FDA-Public Use
  Company Number: BG-GILEAD-2022-0607457

PATIENT
  Age: 30 Year
  Sex: Male
  Weight: 80 kg

DRUGS (2)
  1. BIKTARVY [Suspect]
     Active Substance: BICTEGRAVIR SODIUM\EMTRICITABINE\TENOFOVIR ALAFENAMIDE FUMARATE
     Indication: HIV infection
     Dosage: UNK
     Route: 048
     Dates: start: 2022
  2. DULOXETINE [Concomitant]
     Active Substance: DULOXETINE
     Route: 048

REACTIONS (1)
  - Peripheral sensory neuropathy [Unknown]

NARRATIVE: CASE EVENT DATE: 20220101
